FAERS Safety Report 17169556 (Version 4)
Quarter: 2020Q2

REPORT INFORMATION
  Report Type: Report from Study
  Country: JP (occurrence: JP)
  Receive Date: 20191218
  Receipt Date: 20200527
  Transmission Date: 20200713
  Serious: Yes (Hospitalization, Other)
  Sender: FDA-Public Use
  Company Number: JP-B.I. PHARMACEUTICALS,INC./RIDGEFIELD-2019-NB-120395

PATIENT
  Age: 62 Year
  Sex: Female
  Weight: 82.7 kg

DRUGS (2)
  1. EMPAGLIFLOZIN [Suspect]
     Active Substance: EMPAGLIFLOZIN
     Indication: TYPE 2 DIABETES MELLITUS
     Route: 048
     Dates: start: 20170527, end: 20180905
  2. ATEDIO [Concomitant]
     Active Substance: CILNIDIPINE\VALSARTAN
     Indication: PRODUCT USED FOR UNKNOWN INDICATION
     Route: 048
     Dates: end: 20180905

REACTIONS (2)
  - Diabetic ketoacidosis [Recovered/Resolved]
  - Ketoacidosis [Unknown]

NARRATIVE: CASE EVENT DATE: 20180529
